FAERS Safety Report 6677585-8 (Version None)
Quarter: 2010Q2

REPORT INFORMATION
  Report Type: 
  Country: None (occurrence: None)
  Receive Date: 20100412
  Receipt Date: 20100218
  Transmission Date: 20101027
  Serious: No
  Sender: FDA-Public Use
  Company Number: US-ALEXION-A201000198

PATIENT
  Sex: Male

DRUGS (1)
  1. SOLIRIS [Suspect]
     Indication: PAROXYSMAL NOCTURNAL HAEMOGLOBINURIA
     Dosage: 900 MG, Q 14 DAYS
     Route: 042
     Dates: start: 20070523

REACTIONS (2)
  - BLOOD COUNT ABNORMAL [None]
  - GASTROENTERITIS VIRAL [None]
